FAERS Safety Report 5443248-X (Version None)
Quarter: 2007Q3

REPORT INFORMATION
  Report Type: 
  Country: None (occurrence: None)
  Receive Date: 20070831
  Receipt Date: 20070831
  Transmission Date: 20080115
  Serious: Yes (Hospitalization)
  Sender: FDA-Public Use
  Company Number: None

PATIENT
  Sex: Male
  Weight: 74.1 kg

DRUGS (3)
  1. ZOMETA [Suspect]
     Dosage: 4MG
     Dates: start: 20070208
  2. ZOMETA [Suspect]
     Dosage: 4MG
     Dates: start: 20070503
  3. ZOMETA [Suspect]
     Dosage: 4MG
     Dates: start: 20070802

REACTIONS (2)
  - TOOTH ABSCESS [None]
  - TOOTH INFECTION [None]
